FAERS Safety Report 20051784 (Version 1)
Quarter: 2021Q4

REPORT INFORMATION
  Report Type: Spontaneous
  Country: US (occurrence: US)
  Receive Date: 20211110
  Receipt Date: 20211110
  Transmission Date: 20220303
  Serious: Yes (Other)
  Sender: FDA-Public Use
  Company Number: US-ADVANZ PHARMA-202110007425

PATIENT

DRUGS (1)
  1. HYDROXYCHLOROQUINE [Suspect]
     Active Substance: HYDROXYCHLOROQUINE
     Indication: Systemic lupus erythematosus
     Dosage: UNK, PLAQUENIL
     Route: 065

REACTIONS (3)
  - Immunodeficiency [Unknown]
  - Parathyroid tumour malignant [Unknown]
  - Unevaluable event [Unknown]

NARRATIVE: CASE EVENT DATE: 20090101
